FAERS Safety Report 6701043-5 (Version None)
Quarter: 2010Q2

REPORT INFORMATION
  Report Type: 
  Country: None (occurrence: None)
  Receive Date: 20100428
  Receipt Date: 20100420
  Transmission Date: 20101027
  Serious: Yes (Death, Hospitalization)
  Sender: FDA-Public Use
  Company Number: JP-BRISTOL-MYERS SQUIBB COMPANY-14459556

PATIENT
  Age: 49 Year
  Sex: Female
  Weight: 59 kg

DRUGS (7)
  1. ERBITUX [Suspect]
     Indication: COLON CANCER
     Dosage: INITIATED ON 20NOV08:400MG/M2,1INONCE;02DEC08:250MG/M2,IV, 16DEC08 1INONCE;4THINF:200MG/M21IN1WK.
     Route: 042
     Dates: start: 20081209, end: 20081216
  2. IRINOTECAN HCL [Concomitant]
     Indication: COLON CANCER
     Route: 042
     Dates: start: 20081120, end: 20081209
  3. FLUOROURACIL [Concomitant]
     Indication: COLORECTAL CANCER RECURRENT
     Dosage: IV,3600MG/M2 AS CONT INF:2 D,1 IN 2 WK;BY 600MG/M2 1IN2 WK 20NOV08- 9-11DEC08 20NOV-9DEC08
     Route: 040
     Dates: start: 20081120, end: 20081211
  4. LEUCOVORIN CALCIUM [Concomitant]
     Indication: COLORECTAL CANCER RECURRENT
     Route: 042
     Dates: start: 20081120, end: 20081209
  5. CHLOR-TRIMETON [Concomitant]
     Indication: PREMEDICATION
     Dosage: 1.4286MG
     Route: 042
     Dates: start: 20081120, end: 20081216
  6. DECADRON [Concomitant]
     Indication: PREMEDICATION
     Dosage: 1.1429 MG
     Route: 042
     Dates: start: 20081120, end: 20081216
  7. KYTRIL [Concomitant]
     Indication: ANTIEMETIC SUPPORTIVE CARE
     Dosage: 0.4286MG
     Route: 042
     Dates: start: 20081120, end: 20081120

REACTIONS (4)
  - DEVICE RELATED INFECTION [None]
  - PULMONARY EMBOLISM [None]
  - PYREXIA [None]
  - VENTRICULAR ARRHYTHMIA [None]
